FAERS Safety Report 11759541 (Version 1)
Quarter: 2015Q4

REPORT INFORMATION
  Report Type: Spontaneous
  Country: US (occurrence: US)
  Receive Date: 20151120
  Receipt Date: 20151120
  Transmission Date: 20160304
  Serious: No
  Sender: FDA-Public Use
  Company Number: US-ELI_LILLY_AND_COMPANY-US201210003207

PATIENT
  Sex: Female

DRUGS (16)
  1. ENALAPRIL [Concomitant]
     Active Substance: ENALAPRIL
  2. TYLENOL [Concomitant]
     Active Substance: ACETAMINOPHEN
  3. MIRALAX [Concomitant]
     Active Substance: POLYETHYLENE GLYCOL 3350
  4. VITAMINS [Concomitant]
     Active Substance: VITAMINS
  5. PROTONIX                           /01263202/ [Concomitant]
  6. ULTRAM [Concomitant]
     Active Substance: TRAMADOL HYDROCHLORIDE
  7. OSCAL                              /00751519/ [Concomitant]
  8. PROZAC [Concomitant]
     Active Substance: FLUOXETINE HYDROCHLORIDE
  9. ROBITUSSIN (GUAIFENESIN) [Concomitant]
     Active Substance: GUAIFENESIN
  10. FORTEO [Suspect]
     Active Substance: TERIPARATIDE
     Indication: OSTEOPOROSIS
     Dosage: 20 UG, QD
  11. NORVASC [Concomitant]
     Active Substance: AMLODIPINE BESYLATE
  12. REMERON [Concomitant]
     Active Substance: MIRTAZAPINE
  13. ZOFRAN [Concomitant]
     Active Substance: ONDANSETRON HYDROCHLORIDE
  14. OCUVITE [Concomitant]
     Active Substance: VITAMINS
  15. MILK OF MAGNESIA [Concomitant]
     Active Substance: MAGNESIUM HYDROXIDE
  16. DULCOLAX NOS [Concomitant]
     Active Substance: BISACODYL OR DOCUSATE SODIUM

REACTIONS (1)
  - Osteoporosis [Unknown]
